FAERS Safety Report 26107645 (Version 2)
Quarter: 2025Q4

REPORT INFORMATION
  Report Type: Spontaneous
  Country: AM (occurrence: AM)
  Receive Date: 20251201
  Receipt Date: 20251226
  Transmission Date: 20260118
  Serious: Yes (Other)
  Sender: ROCHE
  Company Number: AM-ROCHE-10000445833

PATIENT
  Age: 43 Year
  Sex: Female

DRUGS (7)
  1. HERCEPTIN [Suspect]
     Active Substance: TRASTUZUMAB
     Indication: Breast cancer
     Dosage: LOADING DOSE
     Route: 042
  2. HERCEPTIN [Suspect]
     Active Substance: TRASTUZUMAB
     Dosage: 6MG/ML, 1Q3W FOR 4 CYCLES
     Route: 042
     Dates: end: 20250927
  3. PERJETA [Suspect]
     Active Substance: PERTUZUMAB
     Indication: Breast cancer
     Dosage: LOADING DOSE
     Route: 042
  4. PERJETA [Suspect]
     Active Substance: PERTUZUMAB
     Dosage: FOR 4 CYCLES
     Route: 042
     Dates: end: 20250927
  5. KADCYLA [Suspect]
     Active Substance: ADO-TRASTUZUMAB EMTANSINE
     Indication: Breast cancer
  6. DOCETAXEL [Suspect]
     Active Substance: DOCETAXEL
     Indication: Breast cancer
     Route: 042
  7. CARBOPLATIN [Suspect]
     Active Substance: CARBOPLATIN
     Indication: Breast cancer
     Dosage: AUC 6 (CALVERT FORMULA)
     Route: 042

REACTIONS (2)
  - Central nervous system lesion [Unknown]
  - Disease progression [Unknown]
